FAERS Safety Report 7732290-1 (Version None)
Quarter: 2011Q3

REPORT INFORMATION
  Report Type: 
  Country: None (occurrence: None)
  Receive Date: 20110906
  Receipt Date: 20110826
  Transmission Date: 20111222
  Serious: No
  Sender: FDA-Public Use
  Company Number: US-AMGEN-USASP2011044274

PATIENT
  Age: 59 Year
  Sex: Female

DRUGS (7)
  1. FISH OIL [Concomitant]
  2. MULTIVITAMIN                       /00097801/ [Concomitant]
  3. ARTHROTEC [Concomitant]
  4. COSAMIN DS [Concomitant]
  5. VITAMIN E                          /00110501/ [Concomitant]
  6. CALCIUM WITH VITAMIN D             /00944201/ [Concomitant]
  7. PROLIA [Suspect]
     Indication: OSTEOPOROSIS POSTMENOPAUSAL
     Dosage: 60 MG, Q6MO
     Dates: start: 20110818

REACTIONS (3)
  - MYALGIA [None]
  - ARTHRALGIA [None]
  - RASH PRURITIC [None]
